FAERS Safety Report 10156477 (Version 1)
Quarter: 2014Q2

REPORT INFORMATION
  Report Type: Spontaneous
  Country: US (occurrence: None)
  Receive Date: 20140506
  Receipt Date: 20140506
  Transmission Date: 20141212
  Serious: Yes (Death)
  Sender: FDA-Public Use
  Company Number: None

PATIENT
  Age: 74 Year
  Sex: Female

DRUGS (1)
  1. PROTHROMBIN COMPLEX CONCENTRATE NOS [Suspect]
     Route: 042
     Dates: start: 20130401

REACTIONS (5)
  - Cardiac arrest [None]
  - International normalised ratio increased [None]
  - Aortic thrombosis [None]
  - Intracardiac thrombus [None]
  - Pulmonary thrombosis [None]
